FAERS Safety Report 9402045 (Version 2)
Quarter: 2013Q3

REPORT INFORMATION
  Report Type: Report from Study
  Country: AR (occurrence: AR)
  Receive Date: 20130716
  Receipt Date: 20130723
  Transmission Date: 20140515
  Serious: Yes (Hospitalization, Other)
  Sender: FDA-Public Use
  Company Number: PHHY2013AR069878

PATIENT
  Age: 52 Year
  Sex: Female

DRUGS (8)
  1. LAPENAX [Suspect]
     Indication: MAJOR DEPRESSION
     Dosage: UNK UKN, UNK
     Route: 048
     Dates: start: 20130528, end: 20130601
  2. DESVENLAFAXINE [Concomitant]
     Dosage: UNK UKN, UNK
  3. LACOSAMIDE [Concomitant]
     Dosage: UNK UKN, UNK
  4. LORAZEPAM [Concomitant]
     Dosage: UNK UKN, UNK
  5. BUPROPION [Concomitant]
     Dosage: UNK UKN, UNK
  6. PRAMIPEXOLE [Concomitant]
     Dosage: UNK UKN, UNK
  7. LAMOTRIGINE [Concomitant]
     Dosage: UNK UKN, UNK
  8. QUETIAPINE [Concomitant]
     Dosage: UNK

REACTIONS (7)
  - Mental disorder [Unknown]
  - Agranulocytosis [Unknown]
  - Leukopenia [Not Recovered/Not Resolved]
  - Anaemia [Unknown]
  - Red blood cell count decreased [Unknown]
  - Neutropenia [Not Recovered/Not Resolved]
  - Diarrhoea [Not Recovered/Not Resolved]
